FAERS Safety Report 9513472 (Version 1)
Quarter: 2013Q3

REPORT INFORMATION
  Report Type: Spontaneous
  Country: US (occurrence: US)
  Receive Date: 20130910
  Receipt Date: 20130910
  Transmission Date: 20140515
  Serious: No
  Sender: FDA-Public Use
  Company Number: US-TARO-2013P1004376

PATIENT
  Age: 78 Year
  Sex: Male
  Weight: 86.18 kg

DRUGS (4)
  1. WARFARIN [Suspect]
     Route: 048
     Dates: start: 20130313, end: 2013
  2. WARFARIN [Suspect]
     Route: 048
     Dates: start: 20130405
  3. ENOXAPARIN [Concomitant]
  4. SIMVASTATIN [Concomitant]

REACTIONS (4)
  - Pruritus generalised [Not Recovered/Not Resolved]
  - Epistaxis [Recovered/Resolved]
  - Insomnia [Not Recovered/Not Resolved]
  - Chest discomfort [Unknown]
